FAERS Safety Report 8172131-4 (Version None)
Quarter: 2012Q1

REPORT INFORMATION
  Report Type: 
  Country: None (occurrence: None)
  Receive Date: 20120228
  Receipt Date: 20120221
  Transmission Date: 20120608
  Serious: Yes (Death)
  Sender: FDA-Public Use
  Company Number: NL-ASTRAZENECA-2012SE13043

PATIENT
  Age: 53 Year
  Sex: Male

DRUGS (4)
  1. CASODEX TABLET 50MG [Concomitant]
     Route: 048
     Dates: start: 20111103
  2. ZOLADEX [Suspect]
     Indication: PROSTATE CANCER
     Route: 058
     Dates: start: 20120113
  3. MORPHINE HCL ELIXIR [Suspect]
     Indication: METASTATIC PAIN
     Dosage: 40 DD
     Route: 048
     Dates: start: 20110503
  4. METHADON HYDROCHLORIDE TAB [Suspect]
     Indication: DEPENDENCE
     Dosage: 120 MGS DD
     Route: 048
     Dates: start: 20090101

REACTIONS (2)
  - PSYCHOTIC DISORDER [None]
  - COMPLETED SUICIDE [None]
